FAERS Safety Report 7293954 (Version 3)
Quarter: 2014Q1

REPORT INFORMATION
  Report Type: Spontaneous
  Country: US (occurrence: US)
  Receive Date: 20100225
  Receipt Date: 20140130
  Transmission Date: 20141002
  Serious: Yes (Hospitalization)
  Sender: FDA-Public Use
  Company Number: US-JNJFOC-20100207707

PATIENT
  Sex: Female
  Weight: 61.24 kg

DRUGS (4)
  1. DURAGESIC [Suspect]
     Indication: BACK PAIN
     Route: 062
     Dates: start: 200911
  2. DURAGESIC [Suspect]
     Indication: BACK PAIN
     Route: 062
  3. CALCIUM [Concomitant]
     Indication: BONE DISORDER
     Route: 048
  4. DRUGS FOR TREATMENT OF BONE DISEASES [Concomitant]
     Indication: BONE DISORDER
     Route: 048

REACTIONS (5)
  - Dehydration [Recovered/Resolved]
  - Abdominal discomfort [Recovered/Resolved]
  - Drug ineffective [Not Recovered/Not Resolved]
  - Wrong technique in drug usage process [Unknown]
  - Product quality issue [Unknown]
